FAERS Safety Report 18774514 (Version 1)
Quarter: 2021Q1

REPORT INFORMATION
  Report Type: Other
  Country: AU (occurrence: AU)
  Receive Date: 20210122
  Receipt Date: 20210122
  Transmission Date: 20210419
  Serious: Yes (Other)
  Sender: FDA-Public Use
  Company Number: AU-ROCHE-2754657

PATIENT

DRUGS (1)
  1. BEVACIZUMAB. [Suspect]
     Active Substance: BEVACIZUMAB
     Indication: NEOVASCULAR AGE-RELATED MACULAR DEGENERATION
     Route: 050

REACTIONS (4)
  - Off label use [Unknown]
  - Endophthalmitis [Unknown]
  - Suspected transmission of an infectious agent via product [Unknown]
  - Intentional product use issue [Unknown]
